FAERS Safety Report 5965776-0 (Version None)
Quarter: 2008Q4

REPORT INFORMATION
  Report Type: 
  Country: None (occurrence: None)
  Receive Date: 20081125
  Receipt Date: 20080909
  Transmission Date: 20090506
  Serious: No
  Sender: FDA-Public Use
  Company Number: US-AMGEN-US306667

PATIENT
  Sex: Female
  Weight: 57.2 kg

DRUGS (8)
  1. VECTIBIX [Suspect]
     Indication: COLORECTAL CANCER
     Route: 042
     Dates: start: 20080717
  2. VECTIBIX [Suspect]
     Dates: start: 20060101
  3. REQUIP [Concomitant]
     Route: 065
     Dates: end: 20080907
  4. BENZODIAZEPINE [Concomitant]
     Route: 065
  5. SPIRONOLACTONE [Concomitant]
     Route: 065
  6. FUROSEMIDE [Concomitant]
     Route: 065
  7. AMLODIPINE [Concomitant]
     Route: 065
  8. FLUOROURACIL [Concomitant]
     Route: 065
     Dates: start: 20080403, end: 20080626

REACTIONS (5)
  - DYSPNOEA [None]
  - HERPES ZOSTER [None]
  - PARAESTHESIA [None]
  - TREMOR [None]
  - ULCER [None]
